FAERS Safety Report 5162943-3 (Version None)
Quarter: 2006Q4

REPORT INFORMATION
  Report Type: 
  Country: None (occurrence: None)
  Receive Date: 20061201
  Receipt Date: 20061124
  Transmission Date: 20070319
  Serious: Yes (Other)
  Sender: FDA-Public Use
  Company Number: CH-ROCHE-472590

PATIENT
  Age: 10 Month
  Sex: Female
  Weight: 8.5 kg

DRUGS (1)
  1. ROCEPHIN [Suspect]
     Indication: PYELONEPHRITIS
     Dosage: FORM REPORTED AS: AMPOULES, INTRAVENOUS.
     Route: 040
     Dates: start: 20060829, end: 20060831

REACTIONS (6)
  - CHILLS [None]
  - CYANOSIS [None]
  - FAECES PALE [None]
  - TACHYCARDIA [None]
  - TACHYPNOEA [None]
  - TYPE I HYPERSENSITIVITY [None]
